FAERS Safety Report 25897325 (Version 1)
Quarter: 2025Q4

REPORT INFORMATION
  Report Type: Report from Study
  Country: US (occurrence: US)
  Receive Date: 20251008
  Receipt Date: 20251008
  Transmission Date: 20260118
  Serious: Yes (Hospitalization)
  Sender: SCIECURE PHARMA
  Company Number: US-Sciecure Pharma Inc.-2186173

PATIENT
  Age: 50 Year
  Sex: Female

DRUGS (3)
  1. PAROXETINE HYDROCHLORIDE [Suspect]
     Active Substance: PAROXETINE HYDROCHLORIDE
  2. ARIPIPRAZOLE [Suspect]
     Active Substance: ARIPIPRAZOLE
  3. BENZTROPINE [Suspect]
     Active Substance: BENZTROPINE

REACTIONS (1)
  - Serotonin syndrome [Recovered/Resolved]
